FAERS Safety Report 24235031 (Version 3)
Quarter: 2024Q4

REPORT INFORMATION
  Report Type: Report from Study
  Country: TR (occurrence: TR)
  Receive Date: 20240821
  Receipt Date: 20241016
  Transmission Date: 20250115
  Serious: Yes (Other)
  Sender: PFIZER
  Company Number: TR-PFIZER INC-PV202300067809

PATIENT
  Age: 55 Year
  Sex: Female

DRUGS (1)
  1. ELRANATAMAB [Suspect]
     Active Substance: ELRANATAMAB
     Indication: Plasma cell myeloma refractory
     Dosage: 76 MG

REACTIONS (3)
  - Hypogammaglobulinaemia [Unknown]
  - Cytomegalovirus infection [Unknown]
  - Neutropenia [Recovered/Resolved]
